FAERS Safety Report 9235877 (Version 5)
Quarter: 2014Q2

REPORT INFORMATION
  Report Type: Report from Study
  Country: KR (occurrence: KR)
  Receive Date: 20130417
  Receipt Date: 20140507
  Transmission Date: 20141212
  Serious: No
  Sender: FDA-Public Use
  Company Number: KR-ASTELLAS-2013JP004969

PATIENT
  Age: 32 Year
  Sex: Male

DRUGS (4)
  1. TACROLIMUS [Suspect]
     Indication: DERMATITIS ATOPIC
     Dosage: 0.1 %, UNK
     Route: 061
     Dates: start: 20120525, end: 20120907
  2. SOLONDO [Concomitant]
     Indication: DERMATITIS ATOPIC
     Route: 065
     Dates: start: 20120525, end: 20120601
  3. ALLEGRA [Concomitant]
     Indication: DERMATITIS ATOPIC
     Route: 065
     Dates: start: 20120525, end: 20120727
  4. IONPLANTA [Concomitant]
     Indication: DERMATITIS ATOPIC
     Route: 065
     Dates: start: 20120601, end: 20120704

REACTIONS (2)
  - Alanine aminotransferase increased [Recovered/Resolved]
  - Aspartate aminotransferase increased [Recovered/Resolved]
